FAERS Safety Report 16896334 (Version 1)
Quarter: 2019Q4

REPORT INFORMATION
  Report Type: Spontaneous
  Country: ES (occurrence: ES)
  Receive Date: 20191008
  Receipt Date: 20191008
  Transmission Date: 20200122
  Serious: Yes (Hospitalization)
  Sender: FDA-Public Use
  Company Number: ES-TEVA-2019-ES-1118497

PATIENT
  Age: 15 Year
  Sex: Female

DRUGS (1)
  1. METFORMIN HYDROCHLORIDE TABLET 500MG, 850 MG AND 1000MG [Suspect]
     Active Substance: METFORMIN HYDROCHLORIDE
     Indication: SUICIDE ATTEMPT
     Route: 048

REACTIONS (7)
  - Toxicity to various agents [Recovering/Resolving]
  - Hypoglycaemia [Recovering/Resolving]
  - Lactic acidosis [Recovering/Resolving]
  - Metabolic acidosis [Recovering/Resolving]
  - Suicide attempt [Unknown]
  - Overdose [Unknown]
  - Renal failure [Recovering/Resolving]
